FAERS Safety Report 5816763-4 (Version None)
Quarter: 2008Q3

REPORT INFORMATION
  Report Type: 
  Country: None (occurrence: None)
  Receive Date: 20080721
  Receipt Date: 20080717
  Transmission Date: 20090109
  Serious: Yes (Life-Threatening, Other)
  Sender: FDA-Public Use
  Company Number: GB-BOEHRINGER INGELHEIM GMBH, GERMANY-2008-UK-01378UK

PATIENT
  Age: 59 Year
  Sex: Male

DRUGS (4)
  1. PRAMIPEXOLE DIHYDROCHLORIDE [Suspect]
     Indication: PARKINSON'S DISEASE
     Dosage: DOSE TAPERED DOWN TO 4.5 MG SALT
     Route: 048
  2. SINEMET [Suspect]
  3. MADOPAR [Suspect]
     Dosage: PATIENT WAS SELF-MEDICATING -DOSE NOT REPORTED
  4. PAROXETINE HCL [Concomitant]

REACTIONS (7)
  - ABNORMAL BEHAVIOUR [None]
  - DRUG ABUSE [None]
  - HYPERSEXUALITY [None]
  - MOOD SWINGS [None]
  - RESTLESSNESS [None]
  - SUICIDE ATTEMPT [None]
  - THEFT [None]
